FAERS Safety Report 10250431 (Version 1)
Quarter: 2014Q2

REPORT INFORMATION
  Report Type: Spontaneous
  Country: PL (occurrence: PL)
  Receive Date: 20140620
  Receipt Date: 20140620
  Transmission Date: 20141212
  Serious: Yes (Life-Threatening)
  Sender: FDA-Public Use
  Company Number: PL-WATSON-2014-13120

PATIENT
  Age: 25 Year
  Sex: Male
  Weight: 83 kg

DRUGS (1)
  1. NOXIZOL [Suspect]
     Indication: INSOMNIA
     Dosage: 10 MG, UNKNOWN; ACTAVIS GROUP
     Route: 048
     Dates: start: 20140430

REACTIONS (1)
  - Somnambulism [Recovered/Resolved]
